FAERS Safety Report 12767461 (Version 4)
Quarter: 2019Q4

REPORT INFORMATION
  Report Type: Spontaneous
  Country: US (occurrence: US)
  Receive Date: 20160921
  Receipt Date: 20191118
  Transmission Date: 20200122
  Serious: No
  Sender: FDA-Public Use
  Company Number: US-PFIZER INC-2016422273

PATIENT
  Age: 74 Year
  Sex: Female
  Weight: 59.86 kg

DRUGS (1)
  1. PREMARIN [Suspect]
     Active Substance: ESTROGENS, CONJUGATED
     Dosage: 1 G, (INSERT 1 G INTO THE VAGINA EVERY 3 DAYS AT BEDTIME)
     Route: 067

REACTIONS (5)
  - Nasal disorder [Unknown]
  - Product dispensing error [Unknown]
  - Hypersensitivity [Unknown]
  - Malaise [Unknown]
  - Limb injury [Unknown]
